FAERS Safety Report 6443467-X (Version None)
Quarter: 2009Q4

REPORT INFORMATION
  Report Type: 
  Country: None (occurrence: None)
  Receive Date: 20091117
  Receipt Date: 20091105
  Transmission Date: 20100525
  Serious: Yes (Death, Hospitalization, Other)
  Sender: FDA-Public Use
  Company Number: US-PFIZER INC-2009262782

PATIENT
  Sex: Male

DRUGS (1)
  1. SUTENT [Suspect]
     Dosage: 50 MG, 1X/DAY X 28DAYS Q 42 DAYS
     Dates: start: 20090821, end: 20091015

REACTIONS (3)
  - CHEST PAIN [None]
  - DEATH [None]
  - PULMONARY EMBOLISM [None]
